FAERS Safety Report 4508622-4 (Version None)
Quarter: 2004Q4

REPORT INFORMATION
  Report Type: 
  Country: None (occurrence: None)
  Receive Date: 20041123
  Receipt Date: 20040503
  Transmission Date: 20050328
  Serious: No
  Sender: FDA-Public Use
  Company Number: US-GLAXOSMITHKLINE-A0509550A

PATIENT
  Sex: Female

DRUGS (3)
  1. WELLBUTRIN SR [Suspect]
     Indication: MIGRAINE
     Route: 048
  2. WELLBUTRIN XL [Concomitant]
     Indication: MIGRAINE
     Route: 048
  3. ZOLOFT [Concomitant]
     Indication: MIGRAINE

REACTIONS (2)
  - ASTHENIA [None]
  - HEADACHE [None]
